FAERS Safety Report 15112372 (Version 2)
Quarter: 2018Q3

REPORT INFORMATION
  Report Type: Report from Study
  Country: DE (occurrence: DE)
  Receive Date: 20180705
  Receipt Date: 20180710
  Transmission Date: 20181010
  Serious: Yes (Other)
  Sender: FDA-Public Use
  Company Number: DE-PFIZER INC-2018259394

PATIENT
  Age: 23 Year
  Sex: Male

DRUGS (3)
  1. CRIZOTINIB [Suspect]
     Active Substance: CRIZOTINIB
     Indication: RHABDOMYOSARCOMA
     Dosage: 500 MG, STANDARD DOSAGE
     Route: 048
  2. PONATINIB [Suspect]
     Active Substance: PONATINIB
     Indication: RHABDOMYOSARCOMA
     Dosage: 45 MG, STANDARD DOSAGE
     Route: 048
  3. EPIRUBICIN HCL [Suspect]
     Active Substance: EPIRUBICIN HYDROCHLORIDE
     Indication: RHABDOMYOSARCOMA
     Dosage: 100 MG/M2, STANDARD DOSAGE

REACTIONS (4)
  - Lymphopenia [Unknown]
  - Blood bilirubin increased [Unknown]
  - Aspartate aminotransferase increased [Unknown]
  - Neutropenia [Unknown]
